FAERS Safety Report 4591416-1 (Version None)
Quarter: 2005Q1

REPORT INFORMATION
  Report Type: 
  Country: None (occurrence: None)
  Receive Date: 20050223
  Receipt Date: 20050223
  Transmission Date: 20050727
  Serious: No
  Sender: FDA-Public Use
  Company Number: None

PATIENT
  Sex: Male
  Weight: 142.2934 kg

DRUGS (7)
  1. GM- CSF 250 MCG / M2 [Suspect]
     Indication: PROSTATE CANCER
     Dosage: 500 MCG  QD X 14
     Dates: start: 20050215, end: 20050218
  2. LUPRON [Concomitant]
  3. INSULIN [Concomitant]
  4. CACO3 [Concomitant]
  5. ASPIRIN [Concomitant]
  6. LEVAQUIN [Concomitant]
  7. PYRIDIUM [Concomitant]

REACTIONS (2)
  - DYSURIA [None]
  - URINARY RETENTION [None]
